FAERS Safety Report 4336004-7 (Version None)
Quarter: 2004Q2

REPORT INFORMATION
  Report Type: 
  Country: None (occurrence: None)
  Receive Date: 20040406
  Receipt Date: 20040325
  Transmission Date: 20050107
  Serious: Yes (Other)
  Sender: FDA-Public Use
  Company Number: HQWYE110625MAR04

PATIENT
  Age: 65 Year
  Sex: Male

DRUGS (2)
  1. PANTOC (PANTOPRAZOLE) [Suspect]
     Indication: DIAPHRAGMATIC HERNIA
     Dosage: 40 MG 1X EPR 1 DAY ORAL
     Route: 048
     Dates: start: 20031022, end: 20031117
  2. PANTOC (PANTOPRAZOLE) [Suspect]
     Indication: HIATUS HERNIA
     Dosage: 40 MG 1X EPR 1 DAY ORAL
     Route: 048
     Dates: start: 20031022, end: 20031117

REACTIONS (2)
  - RASH [None]
  - SKIN DESQUAMATION [None]
